FAERS Safety Report 7086609-8 (Version None)
Quarter: 2010Q4

REPORT INFORMATION
  Report Type: 
  Country: None (occurrence: None)
  Receive Date: 20101105
  Receipt Date: 20101011
  Transmission Date: 20110411
  Serious: No
  Sender: FDA-Public Use
  Company Number: US-TYCO HEALTHCARE/MALLINCKRODT-T201002127

PATIENT

DRUGS (4)
  1. PENNSAID [Suspect]
     Indication: ARTHRITIS
     Dosage: 10 GTT, QD
     Route: 061
     Dates: start: 20100916, end: 20101006
  2. INSULIN [Concomitant]
     Indication: DIABETES MELLITUS
     Dosage: UNK
  3. ADVAIR DISKUS 100/50 [Concomitant]
     Indication: CHRONIC OBSTRUCTIVE PULMONARY DISEASE
     Dosage: 1 PUFF BID
  4. ATROVENT [Concomitant]
     Indication: CHRONIC OBSTRUCTIVE PULMONARY DISEASE
     Dosage: 1 PUFF AS NEEDED

REACTIONS (2)
  - JOINT SWELLING [None]
  - NON-CARDIAC CHEST PAIN [None]
